FAERS Safety Report 13377586 (Version 1)
Quarter: 2017Q1

REPORT INFORMATION
  Report Type: Spontaneous
  Country: US (occurrence: US)
  Receive Date: 20170328
  Receipt Date: 20170328
  Transmission Date: 20170429
  Serious: Yes (Hospitalization)
  Sender: FDA-Public Use
  Company Number: US-B.I. PHARMACEUTICALS,INC./RIDGEFIELD-2017-BI-016435

PATIENT
  Age: 72 Year
  Sex: Female

DRUGS (2)
  1. ATROVENT [Suspect]
     Active Substance: IPRATROPIUM BROMIDE
     Indication: EMPHYSEMA
     Dosage: 1 INHALATION 4 TIMES A DAY;  FORM STRENGTH: 17 MCG; FORMULATION: INHALATION AEROSOL? ADMINISTRATION
     Route: 055
     Dates: start: 2004
  2. IPRATROPIUM BROMIDE INH [Concomitant]
     Indication: DYSPNOEA
     Dosage: 4 -5 TIMES PER DAY VIA NEBULIZER;  FORMULATION: INHALATION AEROSOL;
     Route: 055

REACTIONS (8)
  - Cough [Not Recovered/Not Resolved]
  - Weight decreased [Unknown]
  - Stress [Not Recovered/Not Resolved]
  - Malaise [Not Recovered/Not Resolved]
  - Dyspnoea [Not Recovered/Not Resolved]
  - Cough [Not Recovered/Not Resolved]
  - Anxiety [Not Recovered/Not Resolved]
  - Productive cough [Not Recovered/Not Resolved]

NARRATIVE: CASE EVENT DATE: 201611
